FAERS Safety Report 10913525 (Version 1)
Quarter: 2015Q1

REPORT INFORMATION
  Report Type: Spontaneous
  Country: US (occurrence: None)
  Receive Date: 20150310
  Receipt Date: 20150310
  Transmission Date: 20150721
  Serious: Yes (Hospitalization)
  Sender: FDA-Public Use
  Company Number: None

PATIENT
  Age: 74 Year
  Sex: Female
  Weight: 100 kg

DRUGS (1)
  1. RIVAROXABAN 15 MG, JANSSEN [Suspect]
     Active Substance: RIVAROXABAN
     Indication: ATRIAL FIBRILLATION
     Route: 048

REACTIONS (5)
  - Blood creatinine increased [None]
  - International normalised ratio increased [None]
  - Haemoglobin decreased [None]
  - Diarrhoea haemorrhagic [None]
  - Abdominal pain [None]

NARRATIVE: CASE EVENT DATE: 20140918
